FAERS Safety Report 5087781-1 (Version None)
Quarter: 2006Q3

REPORT INFORMATION
  Report Type: 
  Country: None (occurrence: None)
  Receive Date: 20060823
  Receipt Date: 20060823
  Transmission Date: 20061208
  Serious: Yes (Other)
  Sender: FDA-Public Use
  Company Number: None

PATIENT
  Age: 58 Year
  Sex: Female
  Weight: 106.5953 kg

DRUGS (1)
  1. LEVAQUIN [Suspect]
     Indication: KIDNEY INFECTION
     Dosage: HOSPITAL BAG

REACTIONS (10)
  - ANXIETY [None]
  - ASTHENIA [None]
  - ASTHMA [None]
  - DYSPNOEA [None]
  - INCREASED BRONCHIAL SECRETION [None]
  - JOINT LOCK [None]
  - MEDICATION ERROR [None]
  - PHOTOPHOBIA [None]
  - STRESS [None]
  - WRONG DRUG ADMINISTERED [None]
